FAERS Safety Report 23857506 (Version 1)
Quarter: 2024Q2

REPORT INFORMATION
  Report Type: Spontaneous
  Country: ES (occurrence: ES)
  Receive Date: 20240515
  Receipt Date: 20240515
  Transmission Date: 20240716
  Serious: Yes (Other)
  Sender: FDA-Public Use
  Company Number: ES-STERISCIENCE B.V.-2024-ST-000615

PATIENT
  Age: 57 Year
  Sex: Male

DRUGS (12)
  1. MYCOPHENOLATE MOFETIL [Suspect]
     Active Substance: MYCOPHENOLATE MOFETIL
     Indication: Pemphigus
     Dosage: 360 MILLIGRAM, QD
     Route: 065
  2. MYCOPHENOLATE MOFETIL [Suspect]
     Active Substance: MYCOPHENOLATE MOFETIL
     Indication: Subcorneal pustular dermatosis
  3. PREDNISONE [Suspect]
     Active Substance: PREDNISONE
     Indication: Pemphigus
     Dosage: 1 MG/KG/BODY WEIGHT
     Route: 065
  4. PREDNISONE [Suspect]
     Active Substance: PREDNISONE
     Indication: Subcorneal pustular dermatosis
  5. METHOTREXATE [Suspect]
     Active Substance: METHOTREXATE
     Indication: Pemphigus
     Dosage: 15 MILLIGRAM, QW
     Route: 065
  6. METHOTREXATE [Suspect]
     Active Substance: METHOTREXATE
     Indication: Subcorneal pustular dermatosis
  7. ISOTRETINOIN [Suspect]
     Active Substance: ISOTRETINOIN
     Indication: Pemphigus
     Dosage: 20 MILLIGRAM, QD
     Route: 065
  8. ISOTRETINOIN [Suspect]
     Active Substance: ISOTRETINOIN
     Indication: Subcorneal pustular dermatosis
  9. ACITRETIN [Suspect]
     Active Substance: ACITRETIN
     Indication: Pemphigus
     Dosage: 10 MILLIGRAM, QD
     Route: 065
  10. ACITRETIN [Suspect]
     Active Substance: ACITRETIN
     Indication: Subcorneal pustular dermatosis
  11. RITUXIMAB [Suspect]
     Active Substance: RITUXIMAB
     Indication: Pemphigus
     Dosage: 1G AT TWO WEEK INTERVALS (2?INFUSIONS),
     Route: 065
  12. RITUXIMAB [Suspect]
     Active Substance: RITUXIMAB
     Indication: Subcorneal pustular dermatosis

REACTIONS (1)
  - Drug ineffective for unapproved indication [Unknown]
